FAERS Safety Report 18331590 (Version 2)
Quarter: 2021Q3

REPORT INFORMATION
  Report Type: Spontaneous
  Country: US (occurrence: US)
  Receive Date: 20200930
  Receipt Date: 20210716
  Transmission Date: 20211014
  Serious: Yes (Other)
  Sender: FDA-Public Use
  Company Number: US-PURDUE-USA-2020-0164801

PATIENT
  Sex: Male

DRUGS (5)
  1. VICODIN [Suspect]
     Active Substance: ACETAMINOPHEN\HYDROCODONE BITARTRATE
     Indication: PAIN
     Dosage: UNKNOWN
     Route: 048
  2. HYDROCODONE BITARTRATE AND ACETAMINOPHEN [Suspect]
     Active Substance: ACETAMINOPHEN\HYDROCODONE BITARTRATE
     Indication: PAIN
     Dosage: 7.5?325 MG Q4H PRN
     Route: 048
  3. VICODIN [Suspect]
     Active Substance: ACETAMINOPHEN\HYDROCODONE BITARTRATE
     Dosage: 5.5 MG, 6 PILLS DAILY
     Route: 048
  4. TRAMADOL CR TABLETS (RHODES 21?745) [Suspect]
     Active Substance: TRAMADOL
     Indication: PAIN
     Dosage: UNKNOWN
     Route: 048
  5. VICODIN [Suspect]
     Active Substance: ACETAMINOPHEN\HYDROCODONE BITARTRATE
     Dosage: 7.5 MG, 3 PILLS, TID
     Route: 048

REACTIONS (13)
  - Mental impairment [Unknown]
  - Pulmonary function test decreased [Unknown]
  - Abnormal behaviour [Unknown]
  - Mental disorder [Unknown]
  - General physical health deterioration [Unknown]
  - Delirium tremens [Unknown]
  - Drug dependence [Recovered/Resolved]
  - Withdrawal syndrome [Unknown]
  - Sudden onset of sleep [Unknown]
  - Pain [Recovering/Resolving]
  - Memory impairment [Recovering/Resolving]
  - Dyspnoea [Unknown]
  - Drug ineffective [Unknown]
